FAERS Safety Report 8321313 (Version 2)
Quarter: 2013Q1

REPORT INFORMATION
  Report Type: Spontaneous
  Country: US (occurrence: US)
  Receive Date: 20120104
  Receipt Date: 20130214
  Transmission Date: 20140127
  Serious: Yes (Hospitalization, Other)
  Sender: FDA-Public Use
  Company Number: US-ROCHE-1027030

PATIENT
  Sex: Male
  Weight: 68.1 kg

DRUGS (3)
  1. ACCUTANE [Suspect]
     Indication: ACNE
     Route: 065
     Dates: start: 199201, end: 199210
  2. ACCUTANE [Suspect]
     Route: 065
     Dates: end: 1993
  3. TYLENOL [Concomitant]

REACTIONS (5)
  - Colitis ulcerative [Unknown]
  - Anaemia [Unknown]
  - Inflammatory bowel disease [Unknown]
  - Depression [Unknown]
  - Injury [Unknown]
